FAERS Safety Report 8553960-1 (Version None)
Quarter: 2012Q3

REPORT INFORMATION
  Report Type: 
  Country: None (occurrence: None)
  Receive Date: 20120731
  Receipt Date: 20120723
  Transmission Date: 20120928
  Serious: Yes (Disabling, Other)
  Sender: FDA-Public Use
  Company Number: US-009507513-1202USA03717

PATIENT

DRUGS (21)
  1. LOMOTIL [Suspect]
     Indication: CROHN'S DISEASE
     Dosage: 2.5 MG, QID
     Route: 048
  2. ATENOLOL [Suspect]
     Indication: HYPERTENSION
     Dosage: 25 MG, QD
     Route: 048
  3. TYLENOL W/ CODEINE NO. 3 [Suspect]
     Indication: MIGRAINE
     Dosage: UNK UNK, QD
  4. NITROSTAT [Suspect]
     Indication: CHEST PAIN
     Dosage: 0.4 MG, PRN
  5. GENERLAC [Suspect]
     Indication: CROHN'S DISEASE
     Dosage: 30 MG, PRN
  6. FUROSEMIDE [Suspect]
     Dosage: 40 MG, BID
     Route: 048
  7. POTASSIUM CHLORIDE [Suspect]
     Indication: MINERAL SUPPLEMENTATION
     Dosage: 8 MEQ, QD
  8. ZANTAC [Suspect]
     Indication: GASTROOESOPHAGEAL REFLUX DISEASE
     Dosage: 300 MG, TID
  9. ASPIRIN [Suspect]
     Indication: CHEST PAIN
     Dosage: 81 MG, PRN
  10. REMERON [Suspect]
     Indication: INSOMNIA
     Dosage: 30 MG, QD
     Route: 048
  11. ZOCOR [Suspect]
     Indication: BLOOD CHOLESTEROL INCREASED
     Dosage: 40 MG, QD
     Route: 048
  12. LANTUS [Suspect]
     Indication: DIABETES MELLITUS
     Dosage: 80 UNITS IN MORNING, 90 UNITS AT NIGHT
  13. HUMULIN R [Suspect]
     Indication: DIABETES MELLITUS
     Dosage: 24 IU, TID
  14. METHOCARBAMOL [Suspect]
     Indication: MUSCLE SPASMS
     Dosage: 750 MG, PRN
     Route: 048
  15. METHOCARBAMOL [Suspect]
     Indication: NEUROPATHY PERIPHERAL
     Dosage: UNK
  16. DILANTIN [Suspect]
     Indication: CONVULSION
     Dosage: 300 MG, BID
     Route: 048
  17. ISOSORBIDE MONONITRATE [Suspect]
     Indication: CARDIAC DISORDER
     Dosage: 30 MG, TID
  18. DEPAKOTE [Suspect]
     Indication: CONVULSION
     Dosage: 500 MG, BID
     Route: 048
  19. ATIVAN [Suspect]
     Indication: NERVOUSNESS
     Dosage: 1 MG, TID
     Route: 048
  20. NORVASC [Suspect]
     Indication: CARDIAC DISORDER
     Route: 048
  21. NORVASC [Suspect]
     Indication: LUNG DISORDER

REACTIONS (4)
  - CHRONIC OBSTRUCTIVE PULMONARY DISEASE [None]
  - EMPHYSEMA [None]
  - BEDRIDDEN [None]
  - AMNESIA [None]
